FAERS Safety Report 5520800-4 (Version None)
Quarter: 2007Q4

REPORT INFORMATION
  Report Type: 
  Country: None (occurrence: None)
  Receive Date: 20071116
  Receipt Date: 20071116
  Transmission Date: 20080405
  Serious: No
  Sender: FDA-Public Use
  Company Number: None

PATIENT
  Age: 41 Year

DRUGS (7)
  1. PHENERGAN [Suspect]
     Indication: NAUSEA
     Dosage: 25MG PRN Q4-6 IV PUSH
     Route: 042
     Dates: start: 20071001, end: 20071002
  2. XANAX [Concomitant]
  3. TOPAMAX [Concomitant]
  4. PHENERGAN [Concomitant]
  5. LOXITANE [Concomitant]
  6. DEMEROL [Concomitant]
  7. GI MIXTURE OR [Concomitant]

REACTIONS (1)
  - TREMOR [None]
